FAERS Safety Report 23040891 (Version 1)
Quarter: 2023Q4

REPORT INFORMATION
  Report Type: Spontaneous
  Country: IT (occurrence: IT)
  Receive Date: 20231006
  Receipt Date: 20231006
  Transmission Date: 20240110
  Serious: Yes (Death)
  Sender: FDA-Public Use
  Company Number: None

PATIENT
  Age: 81 Year
  Sex: Female

DRUGS (9)
  1. PANTOPRAZOLE [Suspect]
     Active Substance: PANTOPRAZOLE
     Indication: Product used for unknown indication
     Dosage: UNIT DOSE : 20 MG, FREQUENCY TIME : 1 DAY
  2. DAPAGLIFLOZIN [Suspect]
     Active Substance: DAPAGLIFLOZIN
     Indication: Product used for unknown indication
     Dosage: 10  DAILY; DAPAGLIFOZIN 10 MG DAILY, DURATION : 9 DAYS
     Dates: start: 20230530, end: 20230608
  3. ACTRAPID [Concomitant]
     Active Substance: INSULIN HUMAN
     Indication: Product used for unknown indication
     Dosage: 10U FOR LUNCH AND DINNER, 8U FOR BREAKFAST
  4. XULTOPHY 100/3.6 [Concomitant]
     Active Substance: INSULIN DEGLUDEC\LIRAGLUTIDE
     Indication: Product used for unknown indication
     Dosage: 20 IU (INTERNATIONAL UNIT) DAILY; 20U AT 9PM
  5. CANRENONE [Concomitant]
     Active Substance: CANRENONE
     Indication: Product used for unknown indication
     Dosage: UNIT DOSE : 50 MG, FREQUENCY TIME : 1 DAY
  6. ENTRESTO [Concomitant]
     Active Substance: SACUBITRIL\VALSARTAN
     Indication: Product used for unknown indication
     Dosage: 2 DOSAGE FORMS DAILY; 24/26 MG 1 TABLET AT 8 AM AND 1 TABLET AT 8 PM
  7. ELIQUIS [Concomitant]
     Active Substance: APIXABAN
     Indication: Product used for unknown indication
     Dosage: 2 DOSAGE FORMS DAILY; 1 TABLET AT 8AM, 1 TABLET AT 8PM, UNIT DOSE : 5 MG
  8. ISOPTIN [Concomitant]
     Active Substance: VERAPAMIL HYDROCHLORIDE
     Indication: Product used for unknown indication
     Dosage: 3 DOSAGE FORMS DAILY; 1 TABLET FOR BREAKFAST, 1 TABLET FOR LUNCH AND 1 TABLET FOR DINNER, UNIT DOSE
  9. LASIX [Concomitant]
     Active Substance: FUROSEMIDE
     Indication: Product used for unknown indication
     Dosage: UNIT DOSE : 25 MG, FREQUENCY TIME : 1 DAY

REACTIONS (3)
  - Multiple organ dysfunction syndrome [Fatal]
  - Atrial fibrillation [Fatal]
  - Diabetic ketoacidosis [Fatal]

NARRATIVE: CASE EVENT DATE: 20230608
